FAERS Safety Report 5487070-7 (Version None)
Quarter: 2007Q3

REPORT INFORMATION
  Report Type: 
  Country: None (occurrence: None)
  Receive Date: 20070925
  Receipt Date: 20070709
  Transmission Date: 20080115
  Serious: No
  Sender: FDA-Public Use
  Company Number: 2007US001596

PATIENT
  Age: 74 Year
  Sex: Male

DRUGS (8)
  1. VESICARE [Suspect]
     Indication: HYPERTONIC BLADDER
     Dosage: 5 MG, ORAL
     Route: 048
     Dates: start: 20070620
  2. METAMUCIL-2 [Concomitant]
  3. STOOL SOFTENER              (DOCUSATE SODIUM) [Concomitant]
  4. CALCIUM         (ASCORBIC ACID) [Concomitant]
  5. CENTRUM          (BIOTIN, ASCORBIC ACID) [Concomitant]
  6. THYROID THERAPY [Concomitant]
  7. COSOPT      (DORZOLAMIDE) [Concomitant]
  8. ASPIRIN [Concomitant]

REACTIONS (3)
  - CONSTIPATION [None]
  - DRUG INEFFECTIVE [None]
  - INCONTINENCE [None]
